FAERS Safety Report 8648664 (Version 3)
Quarter: 2013Q1

REPORT INFORMATION
  Report Type: Report from Study
  Country: US (occurrence: US)
  Receive Date: 20120703
  Receipt Date: 20130111
  Transmission Date: 20140127
  Serious: Yes (Hospitalization)
  Sender: FDA-Public Use
  Company Number: US-JNJFOC-20120700233

PATIENT
  Age: 11 Year
  Sex: Male
  Weight: 36.3 kg

DRUGS (5)
  1. REMICADE [Suspect]
     Indication: INFLAMMATORY BOWEL DISEASE
     Route: 042
     Dates: start: 20080221
  2. REMICADE [Suspect]
     Indication: INFLAMMATORY BOWEL DISEASE
     Route: 042
     Dates: start: 20120502
  3. REMICADE [Suspect]
     Indication: INFLAMMATORY BOWEL DISEASE
     Route: 042
     Dates: start: 20120620
  4. 5-ASA [Concomitant]
     Route: 048
  5. ABILIFY [Concomitant]

REACTIONS (2)
  - Enterovesical fistula [Recovered/Resolved]
  - Pelvic abscess [Recovered/Resolved]
